FAERS Safety Report 11106403 (Version 3)
Quarter: 2015Q3

REPORT INFORMATION
  Report Type: Report from Study
  Country: BE (occurrence: BE)
  Receive Date: 20150512
  Receipt Date: 20150715
  Transmission Date: 20151125
  Serious: Yes (Hospitalization, Other)
  Sender: FDA-Public Use
  Company Number: BE-ASTRAZENECA-2015SE42068

PATIENT
  Age: 29278 Day
  Sex: Male

DRUGS (5)
  1. NEBIVOLOL. [Concomitant]
     Active Substance: NEBIVOLOL
     Indication: HYPERTENSION
  2. ASA [Suspect]
     Active Substance: ASPIRIN
     Indication: THROMBOSIS PROPHYLAXIS
     Dosage: NON-AZ PRODUCT
     Route: 048
     Dates: end: 20150128
  3. DIAZEPAM. [Concomitant]
     Active Substance: DIAZEPAM
     Indication: ANXIOLYTIC THERAPY
     Dosage: 10MG
     Dates: start: 2009
  4. TICAGRELOR [Suspect]
     Active Substance: TICAGRELOR
     Indication: THROMBOSIS PROPHYLAXIS
     Route: 048
     Dates: start: 20141226
  5. FORZATEN [Concomitant]
     Indication: HYPERTENSION

REACTIONS (2)
  - Anaemia [Recovered/Resolved]
  - Anorectal disorder [Recovered/Resolved]

NARRATIVE: CASE EVENT DATE: 20150414
